FAERS Safety Report 6883058-X (Version None)
Quarter: 2010Q3

REPORT INFORMATION
  Report Type: 
  Country: None (occurrence: None)
  Receive Date: 20100729
  Receipt Date: 20100723
  Transmission Date: 20110219
  Serious: Yes (Hospitalization)
  Sender: FDA-Public Use
  Company Number: RU-ROCHE-717327

PATIENT
  Sex: Female
  Weight: 55 kg

DRUGS (2)
  1. TOCILIZUMAB [Suspect]
     Indication: RHEUMATOID ARTHRITIS
     Dosage: FREQUENCY: MONTHLY. TEMPORARILY INTERRUPTED.
     Route: 042
  2. METHOTREXATE/PLACEBO [Suspect]
     Indication: RHEUMATOID ARTHRITIS
     Dosage: FREQUENCY: WEEKLY. TEMPORARILY INTERRUPTED.
     Route: 048

REACTIONS (2)
  - ABSCESS LIMB [None]
  - LYMPHADENITIS [None]
